FAERS Safety Report 8888213 (Version 1)
Quarter: 2012Q4

REPORT INFORMATION
  Report Type: 
  Country: GB (occurrence: GB)
  Receive Date: 20121106
  Receipt Date: 20121106
  Transmission Date: 20130627
  Serious: Yes (Other)
  Sender: FDA-Public Use
  Company Number: GB-UCBSA-070032

PATIENT
  Sex: Female

DRUGS (8)
  1. CO-CODAMOL [Suspect]
     Indication: SPINAL PAIN
     Dosage: 2 TABLETS 30/500 MG,FROM LAST 2 YEARS
  2. CO-CODAMOL [Suspect]
     Indication: SPINAL PAIN
     Dosage: 1 TABLET OF 30/500MG AND 1 TABLET OF 8/500MG.
  3. DISOPYRAMIDE [Concomitant]
  4. MOVICOL [Concomitant]
     Indication: CONSTIPATION
  5. MULTIVITAMIN [Concomitant]
  6. OMEGA-3 ACIDS [Concomitant]
  7. PARACETAMOL [Concomitant]
     Indication: DIAPHRAGMALGIA
     Dosage: 2 WEEKS AGO
     Dates: start: 2012
  8. PARACETAMOL [Concomitant]
     Indication: DIAPHRAGMALGIA

REACTIONS (14)
  - Dyspnoea [Recovering/Resolving]
  - Agitation [Recovered/Resolved]
  - Confusional state [Recovered/Resolved]
  - Constipation [Not Recovered/Not Resolved]
  - Insomnia [Recovered/Resolved]
  - Dizziness [Recovering/Resolving]
  - Drug dependence [Not Recovered/Not Resolved]
  - Malaise [Recovering/Resolving]
  - Headache [Recovering/Resolving]
  - Nausea [Recovering/Resolving]
  - Urinary retention [Recovering/Resolving]
  - Withdrawal syndrome [Recovered/Resolved]
  - Diaphragmalgia [Unknown]
  - Vitamin D decreased [Unknown]
